FAERS Safety Report 6391074-X (Version None)
Quarter: 2009Q4

REPORT INFORMATION
  Report Type: 
  Country: None (occurrence: None)
  Receive Date: 20091007
  Receipt Date: 20091001
  Transmission Date: 20100525
  Serious: Yes (Disabling, Other)
  Sender: FDA-Public Use
  Company Number: BR-BAYER-200922474LA

PATIENT
  Age: 25 Year
  Sex: Female

DRUGS (3)
  1. BETAFERON [Suspect]
     Indication: MULTIPLE SCLEROSIS
     Route: 058
     Dates: start: 20081201
  2. ACETAMINOPHEN [Concomitant]
     Indication: DYSMENORRHOEA
     Route: 048
     Dates: start: 19950101
  3. IBUPROFEN [Concomitant]
     Indication: PREMEDICATION
     Dosage: BEFORE INJECTION
     Route: 048
     Dates: start: 20090901

REACTIONS (3)
  - HEADACHE [None]
  - MOBILITY DECREASED [None]
  - MUSCLE RIGIDITY [None]
